FAERS Safety Report 9617068 (Version 3)
Quarter: 2014Q1

REPORT INFORMATION
  Report Type: Spontaneous
  Country: US (occurrence: US)
  Receive Date: 20131011
  Receipt Date: 20140224
  Transmission Date: 20141002
  Serious: Yes (Hospitalization)
  Sender: FDA-Public Use
  Company Number: US-BIOGENIDEC-2013BI097824

PATIENT
  Age: 58 Year
  Sex: Female

DRUGS (8)
  1. AVONEX [Suspect]
     Indication: MULTIPLE SCLEROSIS
     Route: 030
     Dates: start: 19970701
  2. AVONEX [Suspect]
     Indication: MULTIPLE SCLEROSIS
     Route: 030
     Dates: start: 19980901
  3. AVONEX [Suspect]
     Indication: MULTIPLE SCLEROSIS
     Route: 030
     Dates: start: 20130214
  4. CARISOPRODOL [Concomitant]
  5. IBUPROFEN [Concomitant]
  6. LEVOTHYROXINE SODIUM [Concomitant]
  7. LOSARTAN POTASSIUM [Concomitant]
  8. SIMVASTATIN [Concomitant]

REACTIONS (6)
  - Nephrolithiasis [Recovered/Resolved]
  - Bladder obstruction [Recovered/Resolved]
  - Azotaemia [Recovered/Resolved]
  - Mobility decreased [Recovered/Resolved]
  - Pyrexia [Recovered/Resolved]
  - Multiple sclerosis relapse [Recovered/Resolved]
